FAERS Safety Report 21022938 (Version 2)
Quarter: 2022Q3

REPORT INFORMATION
  Report Type: Spontaneous
  Country: US (occurrence: US)
  Receive Date: 20220629
  Receipt Date: 20220706
  Transmission Date: 20221026
  Serious: No
  Sender: FDA-Public Use
  Company Number: US-TORRENT-00011917

PATIENT
  Age: 68 Year
  Sex: Female
  Weight: 102 kg

DRUGS (2)
  1. TRAZODONE HYDROCHLORIDE [Suspect]
     Active Substance: TRAZODONE HYDROCHLORIDE
     Indication: Product used for unknown indication
     Dosage: TAKE 1 TABLET NIGHTLY
     Route: 065
     Dates: start: 20220525
  2. EUTHYROX [Concomitant]
     Active Substance: LEVOTHYROXINE SODIUM
     Indication: Thyroid disorder
     Dosage: 25 MCG ONE PER DAY
     Route: 065

REACTIONS (7)
  - Epistaxis [Not Recovered/Not Resolved]
  - Hypertension [Not Recovered/Not Resolved]
  - Product solubility abnormal [Unknown]
  - Product use complaint [Unknown]
  - Product substitution issue [Unknown]
  - Headache [Not Recovered/Not Resolved]
  - Product dose omission issue [Unknown]

NARRATIVE: CASE EVENT DATE: 20220525
